FAERS Safety Report 5032641-5 (Version None)
Quarter: 2006Q2

REPORT INFORMATION
  Report Type: 
  Country: None (occurrence: None)
  Receive Date: 20060620
  Receipt Date: 20060620
  Transmission Date: 20061013
  Serious: No
  Sender: FDA-Public Use
  Company Number: None

PATIENT
  Sex: Female
  Weight: 114.3065 kg

DRUGS (2)
  1. NIACIN [Suspect]
     Dosage: 500 MG 1X DAY
     Dates: start: 20060501, end: 20060601
  2. NIACIN [Suspect]
     Dosage: 500 MG 1X DAY
     Dates: start: 20060617

REACTIONS (3)
  - FEELING HOT [None]
  - NAUSEA [None]
  - POOR QUALITY DRUG ADMINISTERED [None]
